FAERS Safety Report 20457573 (Version 2)
Quarter: 2022Q1

REPORT INFORMATION
  Report Type: Report from Study
  Country: US (occurrence: US)
  Receive Date: 20220210
  Receipt Date: 20220218
  Transmission Date: 20220423
  Serious: Yes (Hospitalization, Other)
  Sender: FDA-Public Use
  Company Number: US-ABBVIE-22K-163-4271943-00

PATIENT
  Sex: Male

DRUGS (3)
  1. VENCLEXTA [Suspect]
     Active Substance: VENETOCLAX
     Indication: Acute myeloid leukaemia
     Route: 048
  2. VENCLEXTA [Suspect]
     Active Substance: VENETOCLAX
     Route: 048
  3. VENCLEXTA [Suspect]
     Active Substance: VENETOCLAX
     Route: 048

REACTIONS (8)
  - Fall [Unknown]
  - Head injury [Unknown]
  - Wound [Unknown]
  - Loss of consciousness [Unknown]
  - Blood disorder [Not Recovered/Not Resolved]
  - Platelet count decreased [Unknown]
  - Gastrointestinal injury [Unknown]
  - Nausea [Unknown]
